FAERS Safety Report 4303440-4 (Version None)
Quarter: 2004Q1

REPORT INFORMATION
  Report Type: 
  Country: None (occurrence: None)
  Receive Date: 20040223
  Receipt Date: 20040206
  Transmission Date: 20041129
  Serious: Yes (Other)
  Sender: FDA-Public Use
  Company Number: 2004-DE-00750BY

PATIENT
  Sex: Female

DRUGS (1)
  1. KINZAL (TELMISARTAN) [Suspect]

REACTIONS (3)
  - DISEASE PROGRESSION [None]
  - HYPERSENSITIVITY [None]
  - LEUKOENCEPHALOMYELITIS [None]
